FAERS Safety Report 4424955-4 (Version None)
Quarter: 2004Q3

REPORT INFORMATION
  Report Type: 
  Country: None (occurrence: None)
  Receive Date: 20040813
  Receipt Date: 20020225
  Transmission Date: 20050211
  Serious: Yes (Hospitalization, Other)
  Sender: FDA-Public Use
  Company Number: PHHO2002DE01785

PATIENT
  Age: 33 Year
  Sex: Female
  Weight: 70 kg

DRUGS (1)
  1. TEGASEROD VS PLACEBO [Suspect]
     Indication: CONSTIPATION
     Dosage: 6 MG, BID
     Route: 048

REACTIONS (3)
  - CARCINOMA EXCISION [None]
  - CARCINOMA IN SITU [None]
  - UTERINE CARCINOMA IN SITU [None]
